FAERS Safety Report 4475934-2 (Version None)
Quarter: 2004Q4

REPORT INFORMATION
  Report Type: 
  Country: None (occurrence: None)
  Receive Date: 20041012
  Receipt Date: 20041004
  Transmission Date: 20050328
  Serious: Yes (Other)
  Sender: FDA-Public Use
  Company Number: 2004073192

PATIENT
  Sex: Male

DRUGS (2)
  1. DILANTIN [Suspect]
     Indication: ILL-DEFINED DISORDER
  2. CALCIUM (CALCIUM) [Suspect]
     Indication: ILL-DEFINED DISORDER

REACTIONS (7)
  - AURA [None]
  - BRAIN OPERATION [None]
  - CRYING [None]
  - DRUG LEVEL CHANGED [None]
  - EMOTIONAL DISORDER [None]
  - MALAISE [None]
  - OSTEOPOROSIS [None]
